FAERS Safety Report 4344809-1 (Version None)
Quarter: 2004Q2

REPORT INFORMATION
  Report Type: 
  Country: None (occurrence: None)
  Receive Date: 20040420
  Receipt Date: 20040408
  Transmission Date: 20050107
  Serious: Yes (Hospitalization)
  Sender: FDA-Public Use
  Company Number: US-JNJFOC-20040401720

PATIENT
  Age: 61 Year
  Sex: Male
  Weight: 101.1521 kg

DRUGS (12)
  1. INFLIXIMAB (INFLIXIMAB, RECOMBINANT) LYOPHILIZED POWDER [Suspect]
     Indication: RHEUMATOID ARTHRITIS
     Dosage: INTRAVENOUS
     Route: 042
     Dates: start: 20011207
  2. INFLIXIMAB (INFLIXIMAB, RECOMBINANT) LYOPHILIZED POWDER [Suspect]
     Indication: RHEUMATOID ARTHRITIS
     Dosage: INTRAVENOUS
     Route: 042
     Dates: start: 20040101
  3. PRINIVIL [Concomitant]
  4. VERAPAMIL [Concomitant]
  5. PROTONIX [Concomitant]
  6. BEXTRA [Concomitant]
  7. PREDNISONE [Concomitant]
  8. PERCOCET [Concomitant]
  9. LIPITOR [Concomitant]
  10. IMDUR [Concomitant]
  11. ASPIRIN [Concomitant]
  12. RHINOCORT (BUDESONIDE) SPRAY [Concomitant]

REACTIONS (2)
  - ANGINA UNSTABLE [None]
  - CORONARY ARTERY STENOSIS [None]
